FAERS Safety Report 23106244 (Version 5)
Quarter: 2024Q1

REPORT INFORMATION
  Report Type: Report from Study
  Country: US (occurrence: US)
  Receive Date: 20231025
  Receipt Date: 20240304
  Transmission Date: 20240410
  Serious: Yes (Other)
  Sender: FDA-Public Use
  Company Number: US-TAIHOP-2023-006969

PATIENT
  Age: 70 Year
  Sex: Male

DRUGS (17)
  1. LYTGOBI [Suspect]
     Active Substance: FUTIBATINIB
     Indication: Cholangiocarcinoma
     Route: 048
     Dates: start: 20230720
  2. LYTGOBI [Suspect]
     Active Substance: FUTIBATINIB
     Route: 048
     Dates: start: 20231019
  3. LYTGOBI [Suspect]
     Active Substance: FUTIBATINIB
     Route: 048
  4. DRONABINOL [Concomitant]
     Active Substance: DRONABINOL
     Indication: Product used for unknown indication
  5. FEXOFENADINE [Concomitant]
     Active Substance: FEXOFENADINE HYDROCHLORIDE
     Indication: Product used for unknown indication
  6. GABAPENTIN [Concomitant]
     Active Substance: GABAPENTIN
     Indication: Product used for unknown indication
  7. GABAPENTIN [Concomitant]
     Active Substance: GABAPENTIN
  8. HYDROXYZINE PAMOATE [Concomitant]
     Active Substance: HYDROXYZINE PAMOATE
     Indication: Product used for unknown indication
  9. LOPERAMIDE [Concomitant]
     Active Substance: LOPERAMIDE
     Indication: Product used for unknown indication
  10. VITAMINS [Concomitant]
     Active Substance: VITAMINS
     Indication: Product used for unknown indication
     Dosage: DAILY
  11. PSYLLIUM FIB [Concomitant]
     Indication: Product used for unknown indication
  12. PATADAY [Concomitant]
     Active Substance: OLOPATADINE HYDROCHLORIDE
     Indication: Product used for unknown indication
     Dosage: SOL
  13. SEVELAMER [Concomitant]
     Active Substance: SEVELAMER
     Indication: Product used for unknown indication
  14. PANTOPRAZOLE [Concomitant]
     Active Substance: PANTOPRAZOLE
     Indication: Product used for unknown indication
  15. NYSTATIN [Concomitant]
     Active Substance: NYSTATIN
     Indication: Product used for unknown indication
     Dosage: CREAM, 10000
  16. PREGABALIN [Concomitant]
     Active Substance: PREGABALIN
     Indication: Product used for unknown indication
  17. CYMBALTA [Concomitant]
     Active Substance: DULOXETINE HYDROCHLORIDE
     Indication: Product used for unknown indication

REACTIONS (11)
  - Neuropathy peripheral [Unknown]
  - Ageusia [Unknown]
  - Decreased appetite [Unknown]
  - Tongue coated [Unknown]
  - Oral candidiasis [Unknown]
  - Weight decreased [Recovered/Resolved]
  - Nail disorder [Not Recovered/Not Resolved]
  - Nail discolouration [Not Recovered/Not Resolved]
  - Skin exfoliation [Unknown]
  - Pain in extremity [Unknown]
  - Onychomadesis [Unknown]
